FAERS Safety Report 10971687 (Version 2)
Quarter: 2015Q2

REPORT INFORMATION
  Report Type: Other
  Country: US (occurrence: AU)
  Receive Date: 20150331
  Receipt Date: 20150409
  Transmission Date: 20150821
  Serious: Yes (Hospitalization)
  Sender: FDA-Public Use
  Company Number: AU-FRI-1000075481

PATIENT
  Age: 52 Year
  Sex: Female

DRUGS (3)
  1. ASENAPINE [Suspect]
     Active Substance: ASENAPINE
     Dosage: 15 MG
     Route: 048
  2. QUETIAPINE FUMARATE. [Suspect]
     Active Substance: QUETIAPINE FUMARATE
     Indication: SCHIZOPHRENIA
     Dosage: 50 MG
  3. ASENAPINE [Suspect]
     Active Substance: ASENAPINE
     Indication: SCHIZOPHRENIA
     Dosage: 10 MG
     Route: 048

REACTIONS (1)
  - Myocarditis [Recovered/Resolved]
